FAERS Safety Report 18124014 (Version 5)
Quarter: 2021Q1

REPORT INFORMATION
  Report Type: Spontaneous
  Country: JP (occurrence: JP)
  Receive Date: 20200807
  Receipt Date: 20210202
  Transmission Date: 20210419
  Serious: Yes (Other)
  Sender: FDA-Public Use
  Company Number: JP-PFIZER INC-2020162293

PATIENT
  Sex: Female

DRUGS (9)
  1. RHEUMATREX [Suspect]
     Active Substance: METHOTREXATE SODIUM
     Indication: CARPAL TUNNEL SYNDROME
     Dosage: 4 MG, WEEKLY
     Route: 048
     Dates: start: 202004, end: 202004
  2. RHEUMATREX [Suspect]
     Active Substance: METHOTREXATE SODIUM
     Dosage: 8 MG, WEEKLY (2 CAPSULE IN THE MORNING, ONE IN THE EVENING, ONE IN THE FOLLOWING DAY FOR 4 WEEKS)
     Route: 048
     Dates: start: 202004, end: 202004
  3. RHEUMATREX [Suspect]
     Active Substance: METHOTREXATE SODIUM
     Dosage: 1 DF, SINGLE
     Dates: start: 20201017, end: 20201017
  4. RHEUMATREX [Suspect]
     Active Substance: METHOTREXATE SODIUM
     Indication: RHEUMATOID ARTHRITIS
     Dosage: 2 MG, WEEKLY
     Route: 048
     Dates: start: 20200422, end: 202004
  5. RHEUMATREX [Suspect]
     Active Substance: METHOTREXATE SODIUM
     Dosage: 4 MG, WEEKLY
     Dates: start: 20200901, end: 202009
  6. TAKECAB [Concomitant]
     Active Substance: VONOPRAZAN FUMARATE
  7. ONEALFA [Concomitant]
     Active Substance: ALFACALCIDOL
  8. FOLIAMIN [Concomitant]
     Active Substance: FOLIC ACID
     Dosage: UNK
     Route: 048
  9. RHEUMATREX [Suspect]
     Active Substance: METHOTREXATE SODIUM
     Dosage: 6 MG, WEEKLY
     Route: 048
     Dates: start: 202004, end: 202004

REACTIONS (31)
  - Back pain [Unknown]
  - Arthralgia [Unknown]
  - Autonomic nervous system imbalance [Unknown]
  - Condition aggravated [Unknown]
  - Feeling abnormal [Unknown]
  - Fatigue [Unknown]
  - Weight increased [Unknown]
  - Dizziness [Recovered/Resolved]
  - Palpitations [Unknown]
  - Pain [Unknown]
  - Musculoskeletal stiffness [Unknown]
  - Chest pain [Unknown]
  - Therapeutic response decreased [Recovering/Resolving]
  - Incorrect dosage administered [Unknown]
  - Somnolence [Unknown]
  - Feeling hot [Unknown]
  - Pulse abnormal [Unknown]
  - Insomnia [Unknown]
  - Peripheral swelling [Unknown]
  - Feeling abnormal [Unknown]
  - Abdominal discomfort [Unknown]
  - Hypoaesthesia [Unknown]
  - Decreased appetite [Unknown]
  - Joint stiffness [Recovering/Resolving]
  - Chest discomfort [Unknown]
  - Stomatitis [Recovering/Resolving]
  - Erythema [Unknown]
  - Arrhythmia [Unknown]
  - Fear of disease [Unknown]
  - Dyspnoea [Unknown]
  - Malaise [Recovered/Resolved]

NARRATIVE: CASE EVENT DATE: 2020
